FAERS Safety Report 5844411-6 (Version None)
Quarter: 2008Q3

REPORT INFORMATION
  Report Type: 
  Country: None (occurrence: None)
  Receive Date: 20080808
  Receipt Date: 20080728
  Transmission Date: 20090109
  Serious: Yes (Hospitalization, Other)
  Sender: FDA-Public Use
  Company Number: GXKR2008IT07055

PATIENT
  Age: 33 Year
  Sex: Male

DRUGS (15)
  1. PREDNISONE [Suspect]
     Indication: IMMUNOSUPPRESSION
     Dosage: 10 MG, QD;
  2. CEFTAZIDIME [Suspect]
  3. FLUCONAZOLE [Suspect]
  4. METRONIDAZOLE [Suspect]
  5. VANCOMYCIN [Suspect]
  6. LANSOPRAZOLE (NGX) (LANSOPRAZOLE) UNKNOWN [Suspect]
  7. CIPROFLOXACIN [Suspect]
  8. SULFAMETHOXAZOLE AND TRIMETHOPRIM [Suspect]
  9. CYCLOSPORINE [Suspect]
  10. BASILUXIMAB (BASILIXIMAB) [Suspect]
     Indication: IMMUNOSUPPRESSION
  11. TACROLIMUS [Suspect]
     Indication: IMMUNOSUPPRESSION
  12. MYCOPHENOLATE MOFETIL [Suspect]
     Indication: IMMUNOSUPPRESSION
  13. MEROPENEM (MEROPENEM) [Suspect]
  14. FILGRASTIM (FILGRASTIM) [Suspect]
  15. CASPOFUNGIN (CASPOFUNGIN) [Suspect]

REACTIONS (9)
  - BACTERIAL INFECTION [None]
  - CHEST DISCOMFORT [None]
  - DYSPNOEA [None]
  - HAEMOGLOBIN DECREASED [None]
  - LEUKOPENIA [None]
  - PLATELET COUNT DECREASED [None]
  - PLEURAL EFFUSION [None]
  - PYREXIA [None]
  - TRANSPLANT REJECTION [None]
